FAERS Safety Report 10333105 (Version 1)
Quarter: 2014Q3

REPORT INFORMATION
  Report Type: Spontaneous
  Country: US (occurrence: US)
  Receive Date: 20140722
  Receipt Date: 20140722
  Transmission Date: 20150326
  Serious: No
  Sender: FDA-Public Use
  Company Number: US-SA-2013SA106095

PATIENT
  Age: 61 Year
  Sex: Male
  Weight: 84 kg

DRUGS (1)
  1. AMBIEN CR [Suspect]
     Active Substance: ZOLPIDEM TARTRATE
     Indication: NEURALGIA
     Dosage: PATIENT MENTIONED STOP DATE ALSO 08-NOV-2013 DOSE:3 UNIT(S)
     Route: 065
     Dates: start: 20130601

REACTIONS (4)
  - Lumbar spinal stenosis [Not Recovered/Not Resolved]
  - Extra dose administered [Unknown]
  - Pain in extremity [Not Recovered/Not Resolved]
  - Groin pain [Not Recovered/Not Resolved]
